FAERS Safety Report 11752718 (Version 1)
Quarter: 2015Q4

REPORT INFORMATION
  Report Type: Report from Study
  Country: US (occurrence: US)
  Receive Date: 20151119
  Receipt Date: 20151119
  Transmission Date: 20160304
  Serious: Yes (Other)
  Sender: FDA-Public Use
  Company Number: US-ROCHE-1659507

PATIENT
  Age: 52 Year
  Sex: Female

DRUGS (6)
  1. MIRALAX [Concomitant]
     Active Substance: POLYETHYLENE GLYCOL 3350
  2. NEUPOGEN [Suspect]
     Active Substance: FILGRASTIM
     Indication: PRODUCT USED FOR UNKNOWN INDICATION
     Route: 065
  3. AVASTIN [Suspect]
     Active Substance: BEVACIZUMAB
     Indication: OVARIAN CANCER
     Route: 042
  4. ATIVAN [Concomitant]
     Active Substance: LORAZEPAM
     Indication: ANXIETY
     Route: 048
  5. NAVELBINE [Concomitant]
     Active Substance: VINORELBINE TARTRATE
     Indication: OVARIAN CANCER
     Route: 042
  6. XARELTO [Concomitant]
     Active Substance: RIVAROXABAN
     Indication: ANTICOAGULANT THERAPY
     Route: 048

REACTIONS (14)
  - Asthenia [Not Recovered/Not Resolved]
  - Pain [Unknown]
  - Abdominal discomfort [Recovered/Resolved]
  - Frustration [Not Recovered/Not Resolved]
  - Dehydration [Unknown]
  - Asthenia [Not Recovered/Not Resolved]
  - Diarrhoea [Recovered/Resolved]
  - Road traffic accident [Unknown]
  - Dysgeusia [Not Recovered/Not Resolved]
  - Decreased appetite [Not Recovered/Not Resolved]
  - Crying [Recovered/Resolved with Sequelae]
  - Stomatitis [Not Recovered/Not Resolved]
  - Migraine [Not Recovered/Not Resolved]
  - Vomiting [Unknown]

NARRATIVE: CASE EVENT DATE: 20151109
